FAERS Safety Report 23265375 (Version 1)
Quarter: 2023Q4

REPORT INFORMATION
  Report Type: Report from Study
  Country: AU (occurrence: None)
  Receive Date: 20231206
  Receipt Date: 20231206
  Transmission Date: 20240110
  Serious: Yes (Hospitalization)
  Sender: FDA-Public Use
  Company Number: AU-ROCHE-3467599

PATIENT
  Age: 74 Year
  Sex: Male

DRUGS (3)
  1. OBINUTUZUMAB [Suspect]
     Active Substance: OBINUTUZUMAB
     Indication: Follicular lymphoma
     Dosage: ON 11/OCT/2023, RECEIVED LAST DOSE OF OBINUTUZUMAB PRIOR TO EVENT
     Route: 042
     Dates: start: 20220713
  2. LENALIDOMIDE [Suspect]
     Active Substance: LENALIDOMIDE
     Indication: Follicular lymphoma
     Dosage: ON 20/DEC/2022, RECEIVED LAST DOSE OF LENALIDOMIDE PRIOR TO EVENT
     Route: 065
     Dates: start: 20220810
  3. VENETOCLAX [Suspect]
     Active Substance: VENETOCLAX
     Indication: Follicular lymphoma
     Dosage: ON 27/DEC/2022, RECEIVED LAST DOSE OF VENETOCLAX PRIOR TO EVENT
     Route: 065
     Dates: start: 20220713

REACTIONS (1)
  - Bronchiolitis [Not Recovered/Not Resolved]

NARRATIVE: CASE EVENT DATE: 20231129
